FAERS Safety Report 18417835 (Version 2)
Quarter: 2022Q2

REPORT INFORMATION
  Report Type: Spontaneous
  Country: CO (occurrence: CO)
  Receive Date: 20201022
  Receipt Date: 20220422
  Transmission Date: 20220721
  Serious: Yes (Other)
  Sender: FDA-Public Use
  Company Number: CO-BIOMARINAP-CO-2020-129791

PATIENT
  Age: 4 Year
  Sex: Male
  Weight: 13.5 kg

DRUGS (9)
  1. VIMIZIM [Suspect]
     Active Substance: ELOSULFASE ALFA
     Indication: Mucopolysaccharidosis IV
     Dosage: 26 MILLIGRAM
     Route: 042
     Dates: start: 20191003
  2. RANITIDINE [Concomitant]
     Active Substance: RANITIDINE
     Indication: Premedication
  3. RANITIDINE [Concomitant]
     Active Substance: RANITIDINE
     Indication: Premedication
  4. HYDROXYZINE [Concomitant]
     Active Substance: HYDROXYZINE HYDROCHLORIDE
     Indication: Premedication
  5. HYDROXYZINE [Concomitant]
     Active Substance: HYDROXYZINE HYDROCHLORIDE
     Indication: Premedication
  6. ACETAMINOPHEN [Concomitant]
     Active Substance: ACETAMINOPHEN
     Indication: Premedication
  7. ACETAMINOPHEN [Concomitant]
     Active Substance: ACETAMINOPHEN
     Indication: Premedication
  8. MONTELUKAST [Concomitant]
     Active Substance: MONTELUKAST SODIUM
     Indication: Premedication
  9. MONTELUKAST [Concomitant]
     Active Substance: MONTELUKAST SODIUM
     Indication: Premedication

REACTIONS (12)
  - Hypersensitivity [Unknown]
  - Rash [Unknown]
  - Cheilitis [Unknown]
  - Pruritus [Unknown]
  - Flushing [Unknown]
  - Wrist deformity [Unknown]
  - Rash maculo-papular [Unknown]
  - Nausea [Unknown]
  - Vomiting [Unknown]
  - Neurological symptom [Unknown]
  - Muscle disorder [Unknown]
  - Cardiovascular symptom [Unknown]

NARRATIVE: CASE EVENT DATE: 20200416
